FAERS Safety Report 5797187-5 (Version None)
Quarter: 2008Q2

REPORT INFORMATION
  Report Type: 
  Country: None (occurrence: None)
  Receive Date: 20080627
  Receipt Date: 20080623
  Transmission Date: 20081010
  Serious: Yes (Hospitalization)
  Sender: FDA-Public Use
  Company Number: 2008SP012235

PATIENT
  Age: 70 Year
  Sex: Male

DRUGS (3)
  1. CELESTAMINE TAB [Suspect]
     Dates: start: 20080118, end: 20080125
  2. AUGMENTIN '200' [Suspect]
     Dates: start: 20071101, end: 20071101
  3. PREDNISOLONE [Suspect]
     Dates: start: 20071201, end: 20071201

REACTIONS (4)
  - AUTOIMMUNE DISORDER [None]
  - CYTOLYTIC HEPATITIS [None]
  - EPSTEIN-BARR VIRUS INFECTION [None]
  - HEPATITIS E [None]
